FAERS Safety Report 10201105 (Version 1)
Quarter: 2014Q2

REPORT INFORMATION
  Report Type: Report from Study
  Country: AR (occurrence: AR)
  Receive Date: 20140528
  Receipt Date: 20140528
  Transmission Date: 20141212
  Serious: Yes (Other)
  Sender: FDA-Public Use
  Company Number: PHHY2014AR061884

PATIENT
  Age: 57 Year
  Sex: Male

DRUGS (2)
  1. ONBREZ [Suspect]
     Indication: EMPHYSEMA
     Dosage: 300 UG, QD
     Route: 055
     Dates: end: 20140507
  2. ONBREZ [Suspect]
     Indication: OFF LABEL USE

REACTIONS (2)
  - Asthma [Unknown]
  - Fatigue [Unknown]
